FAERS Safety Report 6573980-6 (Version None)
Quarter: 2010Q1

REPORT INFORMATION
  Report Type: 
  Country: None (occurrence: None)
  Receive Date: 20100208
  Receipt Date: 20100128
  Transmission Date: 20100710
  Serious: Yes (Hospitalization)
  Sender: FDA-Public Use
  Company Number: US-JNJFOC-20100200424

PATIENT
  Age: 47 Year
  Sex: Female
  Weight: 89.36 kg

DRUGS (2)
  1. EXTRA STRENGTH TYLENOL [Suspect]
     Route: 048
  2. EXTRA STRENGTH TYLENOL [Suspect]
     Indication: PAIN
     Route: 048

REACTIONS (2)
  - NAUSEA [None]
  - PRODUCT QUALITY ISSUE [None]
